FAERS Safety Report 9319367 (Version 1)
Quarter: 2013Q2

REPORT INFORMATION
  Report Type: Spontaneous
  Country: US (occurrence: None)
  Receive Date: 20130529
  Receipt Date: 20130529
  Transmission Date: 20140414
  Serious: Yes (Other)
  Sender: FDA-Public Use
  Company Number: None

PATIENT
  Age: 90 Year
  Sex: Female

DRUGS (1)
  1. FENTANYL [Suspect]
     Indication: OSTEOARTHRITIS
     Dosage: 75, EVERY 72HRS, SKIN
     Dates: start: 20130410

REACTIONS (3)
  - Nausea [None]
  - Product substitution issue [None]
  - Product quality issue [None]
